FAERS Safety Report 17739815 (Version 1)
Quarter: 2020Q2

REPORT INFORMATION
  Report Type: Spontaneous
  Country: US (occurrence: US)
  Receive Date: 20200502
  Receipt Date: 20200502
  Transmission Date: 20200714
  Serious: No
  Sender: FDA-Public Use
  Company Number: None

PATIENT
  Age: 89 Year
  Sex: Female
  Weight: 63.9 kg

DRUGS (7)
  1. ATORVASTATIN TABS/CAPS [Concomitant]
  2. PRADAXA [Concomitant]
     Active Substance: DABIGATRAN ETEXILATE MESYLATE
  3. DILTIAZEM. [Concomitant]
     Active Substance: DILTIAZEM
  4. LATANAPROST OPHTHALMIC SOLUTION 0.005% [Concomitant]
     Active Substance: LATANOPROST
  5. CENTRUM SILVER WOMENS 50 PLUS (PFIZER) [Concomitant]
     Active Substance: MINERALS\VITAMINS
  6. SIMBRINZA [Suspect]
     Active Substance: BRIMONIDINE TARTRATE\BRINZOLAMIDE
     Indication: GLAUCOMA
     Dosage: ?          QUANTITY:1 DROP(S);?
     Route: 047
     Dates: start: 20200501, end: 20200501
  7. HYDROCHLOROTHIAZIDE. [Concomitant]
     Active Substance: HYDROCHLOROTHIAZIDE

REACTIONS (8)
  - Somnolence [None]
  - Disorientation [None]
  - Headache [None]
  - Listless [None]
  - Eye pain [None]
  - Confusional state [None]
  - Dizziness [None]
  - Balance disorder [None]

NARRATIVE: CASE EVENT DATE: 20200501
